FAERS Safety Report 7504444-0 (Version None)
Quarter: 2011Q2

REPORT INFORMATION
  Report Type: 
  Country: None (occurrence: None)
  Receive Date: 20110525
  Receipt Date: 20110512
  Transmission Date: 20111010
  Serious: Yes (Hospitalization)
  Sender: FDA-Public Use
  Company Number: US-UCBSA-030969

PATIENT
  Sex: Male
  Weight: 47.62 kg

DRUGS (12)
  1. LEVAQUIN [Concomitant]
  2. CERTOLIZUMAB PEGOL [Suspect]
     Route: 058
     Dates: start: 20110114
  3. PERCOCET [Concomitant]
     Indication: PAIN
     Dosage: 5/325MG 1-2 TABLETS; Q4H
     Route: 048
  4. CERTOLIZUMAB PEGOL [Suspect]
     Route: 058
     Dates: start: 20100629, end: 20101213
  5. CERTOLIZUMAB PEGOL [Suspect]
     Route: 058
     Dates: start: 20110121
  6. CERTOLIZUMAB PEGOL [Suspect]
     Route: 058
     Dates: start: 20110225
  7. MERCAPTOPURINE [Concomitant]
     Dosage: DAILY
  8. CLONAZEPAM [Concomitant]
     Route: 048
  9. CERTOLIZUMAB PEGOL [Suspect]
     Route: 058
     Dates: start: 20110405
  10. PREDNISONE [Concomitant]
     Indication: CROHN'S DISEASE
     Dosage: DAILY; 5MG 2 TABLETS DAILY X 4 DAYS, THEN 1 TABLET UNTIL SEEN BY DOCTOR
     Dates: start: 20091001
  11. MERCAPTOPURINE [Concomitant]
     Dosage: DAILY
     Route: 048
     Dates: start: 20100401
  12. CERTOLIZUMAB PEGOL [Suspect]
     Indication: CROHN'S DISEASE
     Route: 058
     Dates: start: 20100326

REACTIONS (2)
  - DEHYDRATION [None]
  - PNEUMONIA [None]
